FAERS Safety Report 20080382 (Version 1)
Quarter: 2021Q4

REPORT INFORMATION
  Report Type: Spontaneous
  Country: DE (occurrence: DE)
  Receive Date: 20211117
  Receipt Date: 20211117
  Transmission Date: 20220304
  Serious: Yes (Hospitalization, Other)
  Sender: FDA-Public Use
  Company Number: DE-ADRED-05642-02

PATIENT
  Age: 79 Year
  Sex: Male
  Weight: 100 kg

DRUGS (11)
  1. PREDNISOLONE [Suspect]
     Active Substance: PREDNISOLONE
     Indication: Product used for unknown indication
     Dosage: 10 MILLIGRAM, 1-0-0-0, TABLETTEN
     Route: 048
  2. EDOXABAN [Suspect]
     Active Substance: EDOXABAN
     Dosage: 60 MILLIGRAM, 1-0-0-0, TABLETTEN
     Route: 048
  3. CYANOCOBALAMIN [Concomitant]
     Active Substance: CYANOCOBALAMIN
     Dosage: UNK, 1-0-0-0, KAPSELN
     Route: 048
  4. PRAVASTATIN [Concomitant]
     Active Substance: PRAVASTATIN
     Dosage: 10 MILLIGRAM,  0-0-1-0, TABLETTEN
     Route: 048
  5. METOPROLOL [Concomitant]
     Active Substance: METOPROLOL
     Dosage: 47.5 MG,1-0-1-0, RETARD-TABLETTEN
     Route: 048
  6. LACTULOSE [Concomitant]
     Active Substance: LACTULOSE
     Dosage: 66.7 G, ZEHN ML BEI BEDARF, SAFT
     Route: 048
  7. PANTOPRAZOLE [Concomitant]
     Active Substance: PANTOPRAZOLE
     Dosage: 40 MG, 1-0-1-0, TABLETTEN
     Route: 048
  8. FUROSEMID                          /00032601/ [Concomitant]
     Dosage: 125 MG, 1-0-0-0, TABLETTEN
     Route: 048
  9. CALCIUMCARBONAT [Concomitant]
     Dosage: 500 MG, 0-1-0-0, BRAUSETABLETTEN
     Route: 048
  10. GLYCOPYRRONIUM\INDACATEROL [Concomitant]
     Active Substance: GLYCOPYRRONIUM\INDACATEROL
     Dosage: 43|85 ?G, 1-0-0-0, INHALATIONSKAPSELN
     Route: 055
  11. CHOLECALCIFEROL [Concomitant]
     Active Substance: CHOLECALCIFEROL
     Dosage: 1000 MG, 1-0-0-0, TABLETTEN
     Route: 048

REACTIONS (5)
  - Cardiac failure [Unknown]
  - Cough [Unknown]
  - Oedema peripheral [Unknown]
  - Weight increased [Unknown]
  - Asthenia [Unknown]
